FAERS Safety Report 9229077 (Version 1)
Quarter: 2013Q2

REPORT INFORMATION
  Report Type: Spontaneous
  Country: US (occurrence: US)
  Receive Date: 20130412
  Receipt Date: 20130412
  Transmission Date: 20140414
  Serious: No
  Sender: FDA-Public Use
  Company Number: US-ASTRAZENECA-2013SE20260

PATIENT
  Age: 53 Year
  Sex: Male

DRUGS (2)
  1. SYMBICORT PMDI [Suspect]
     Indication: RESPIRATORY DISORDER
     Route: 055
  2. VENTOLIN [Concomitant]

REACTIONS (4)
  - Dyspnoea [Unknown]
  - Visual acuity reduced [Unknown]
  - Cough [Unknown]
  - Intentional drug misuse [Unknown]
